FAERS Safety Report 17944107 (Version 1)
Quarter: 2020Q2

REPORT INFORMATION
  Report Type: Spontaneous
  Country: CA (occurrence: CA)
  Receive Date: 20200625
  Receipt Date: 20200625
  Transmission Date: 20200714
  Serious: Yes (Hospitalization)
  Sender: FDA-Public Use
  Company Number: CA-CELGENEUS-CAN-20171102743

PATIENT
  Age: 74 Year
  Sex: Female

DRUGS (2)
  1. ABRAXANE [Suspect]
     Active Substance: PACLITAXEL
     Indication: PANCREATIC CARCINOMA METASTATIC
     Dosage: 220 MILLIGRAM
     Route: 041
     Dates: start: 20170804, end: 20171027
  2. GEMCITABINE. [Suspect]
     Active Substance: GEMCITABINE
     Indication: PANCREATIC CARCINOMA
     Dosage: 1790 MILLIGRAM
     Route: 042
     Dates: start: 20170804

REACTIONS (1)
  - Obstruction gastric [Recovered/Resolved with Sequelae]

NARRATIVE: CASE EVENT DATE: 20171102
